FAERS Safety Report 10400578 (Version 1)
Quarter: 2014Q3

REPORT INFORMATION
  Report Type: Spontaneous
  Country: US (occurrence: US)
  Receive Date: 20140821
  Receipt Date: 20140821
  Transmission Date: 20150326
  Serious: No
  Sender: FDA-Public Use
  Company Number: US-ASTRAZENECA-2014SE01306

PATIENT
  Age: 79 Year
  Sex: Male
  Weight: 70.3 kg

DRUGS (1)
  1. SYMBICORT [Suspect]
     Active Substance: BUDESONIDE\FORMOTEROL FUMARATE DIHYDRATE
     Indication: CHRONIC OBSTRUCTIVE PULMONARY DISEASE
     Dosage: 160/4.5, 2 INHALATIONS, TWO TIMES A DAY
     Route: 055
     Dates: start: 2012

REACTIONS (3)
  - Increased bronchial secretion [Unknown]
  - Wheezing [Not Recovered/Not Resolved]
  - Cough [Recovering/Resolving]
